FAERS Safety Report 5498649-0 (Version None)
Quarter: 2007Q4

REPORT INFORMATION
  Report Type: 
  Country: None (occurrence: None)
  Receive Date: 20071024
  Receipt Date: 20071012
  Transmission Date: 20080405
  Serious: Yes (Hospitalization)
  Sender: FDA-Public Use
  Company Number: 2007AL004326

PATIENT
  Age: 58 Year
  Sex: Male

DRUGS (3)
  1. DIGOXIN [Suspect]
  2. WARFARIN SODIUM [Concomitant]
  3. VERAPAMIL HYDROCHLORIDE [Concomitant]

REACTIONS (16)
  - ATRIAL FIBRILLATION [None]
  - CARDIOACTIVE DRUG LEVEL BELOW THERAPEUTIC [None]
  - CARDIOMEGALY [None]
  - CONFUSIONAL STATE [None]
  - CYANOSIS [None]
  - DEPRESSED LEVEL OF CONSCIOUSNESS [None]
  - DIZZINESS [None]
  - DRUG TOXICITY [None]
  - GENERAL PHYSICAL HEALTH DETERIORATION [None]
  - HEART RATE DECREASED [None]
  - HYPOTENSION [None]
  - LEFT VENTRICULAR DYSFUNCTION [None]
  - PERIPHERAL COLDNESS [None]
  - PULSE ABSENT [None]
  - RENAL IMPAIRMENT [None]
  - VOMITING [None]
